FAERS Safety Report 7622309-0 (Version None)
Quarter: 2011Q3

REPORT INFORMATION
  Report Type: 
  Country: None (occurrence: None)
  Receive Date: 20110711
  Receipt Date: 20110624
  Transmission Date: 20111222
  Serious: Yes (Other)
  Sender: FDA-Public Use
  Company Number: LTI2011A00179

PATIENT
  Age: 73 Year
  Sex: Female

DRUGS (1)
  1. ACTOS [Suspect]
     Indication: TYPE 2 DIABETES MELLITUS
     Dosage: (D) ORAL
     Route: 048
     Dates: start: 20070101, end: 20110401

REACTIONS (3)
  - MICTURITION URGENCY [None]
  - BLADDER CANCER [None]
  - HAEMATURIA [None]
